FAERS Safety Report 17873281 (Version 1)
Quarter: 2020Q2

REPORT INFORMATION
  Report Type: Other
  Country: CN (occurrence: CN)
  Receive Date: 20200608
  Receipt Date: 20200608
  Transmission Date: 20200714
  Serious: Yes (Hospitalization)
  Sender: FDA-Public Use
  Company Number: CN-JIANGSU HENGRUI MEDICINE CO., LTD.-2085563

PATIENT
  Age: 51 Year
  Sex: Female

DRUGS (2)
  1. IRINOTECAN HYDROCHLORIDE INJECTION, 20 MG/ML (2 ML AND 5 ML VIALS) (AN [Suspect]
     Active Substance: IRINOTECAN HYDROCHLORIDE
     Indication: OVARIAN CANCER
     Route: 041
     Dates: start: 20200519, end: 20200520
  2. CAPECITABINE TABLETS [Suspect]
     Active Substance: CAPECITABINE
     Route: 048
     Dates: start: 20200519, end: 20200523

REACTIONS (1)
  - Hyperthermia malignant [Unknown]

NARRATIVE: CASE EVENT DATE: 20200522
